FAERS Safety Report 17316613 (Version 1)
Quarter: 2020Q1

REPORT INFORMATION
  Report Type: Spontaneous
  Country: GB (occurrence: GB)
  Receive Date: 20200124
  Receipt Date: 20200124
  Transmission Date: 20200409
  Serious: Yes (Other)
  Sender: FDA-Public Use
  Company Number: GB-NAPPMUNDI-GBR-2020-0074556

PATIENT
  Age: 61 Year
  Sex: Male

DRUGS (2)
  1. LONGTEC [Suspect]
     Active Substance: OXYCODONE HYDROCHLORIDE
     Indication: PAIN
     Dosage: 10 MG, UNK (REPORTED ALSO AS 30 MG)
     Route: 065
  2. SHORTEC [Suspect]
     Active Substance: OXYCODONE HYDROCHLORIDE
     Indication: PAIN
     Dosage: STRENGTH 5 MG/ 5ML
     Route: 065

REACTIONS (2)
  - Drug ineffective [Unknown]
  - Gastric bypass [Unknown]
